FAERS Safety Report 4396681-1 (Version None)
Quarter: 2004Q3

REPORT INFORMATION
  Report Type: 
  Country: None (occurrence: None)
  Receive Date: 20040709
  Receipt Date: 20040629
  Transmission Date: 20050211
  Serious: Yes (Hospitalization)
  Sender: FDA-Public Use
  Company Number: OMPQ-NO-0407S-0725

PATIENT
  Age: 44 Year
  Sex: Female

DRUGS (2)
  1. OMNIPAQUE 180 [Suspect]
     Indication: SCLEROTHERAPY
     Dosage: 1 ML, SINGLE DOSE, I.V.; 2 ML, I.V.
     Route: 042
     Dates: start: 20040413, end: 20040413
  2. SODIUM TETRADECYL SULFATE (SOTRADECOL) [Concomitant]

REACTIONS (2)
  - EYE MOVEMENT DISORDER [None]
  - SKIN DISCOLOURATION [None]
